FAERS Safety Report 5213175-1 (Version None)
Quarter: 2007Q1

REPORT INFORMATION
  Report Type: 
  Country: None (occurrence: None)
  Receive Date: 20070119
  Receipt Date: 20070118
  Transmission Date: 20070707
  Serious: Yes (Other)
  Sender: FDA-Public Use
  Company Number: US-GLAXOSMITHKLINE-A0636164A

PATIENT
  Age: 50 Year
  Sex: Male

DRUGS (7)
  1. LAMICTAL [Suspect]
     Indication: BIPOLAR DISORDER
     Dosage: 100MG TWICE PER DAY
     Route: 048
  2. OXYCONTIN [Suspect]
     Dosage: 60MG TWICE PER DAY
     Route: 048
     Dates: end: 20070101
  3. PLAVIX [Concomitant]
  4. COREG [Concomitant]
  5. LIPITOR [Concomitant]
  6. HYDROCHLOROTHIAZIDE [Concomitant]
  7. PROTONIX [Concomitant]

REACTIONS (1)
  - BLINDNESS [None]
